FAERS Safety Report 8143877-9 (Version None)
Quarter: 2012Q1

REPORT INFORMATION
  Report Type: 
  Country: None (occurrence: None)
  Receive Date: 20120103
  Receipt Date: 20111010
  Transmission Date: 20120608
  Serious: No
  Sender: FDA-Public Use
  Company Number: AE-2011-002205

PATIENT
  Age: 64 Year
  Sex: Female
  Weight: 66.6788 kg

DRUGS (3)
  1. INCIVEK [Suspect]
     Dosage: 2250 MG (750 MG, 1 IN 8 HR)
     Dates: start: 20110907
  2. PEGASYS [Concomitant]
  3. RIBASPHERE [Concomitant]

REACTIONS (2)
  - RASH PRURITIC [None]
  - DIARRHOEA [None]
